FAERS Safety Report 9728481 (Version 1)
Quarter: 2013Q4

REPORT INFORMATION
  Report Type: Spontaneous
  Country: US (occurrence: None)
  Receive Date: 20131203
  Receipt Date: 20131203
  Transmission Date: 20140711
  Serious: Yes (Hospitalization)
  Sender: FDA-Public Use
  Company Number: None

PATIENT
  Age: 52 Year
  Sex: Male
  Weight: 63.96 kg

DRUGS (3)
  1. STRIBILD [Suspect]
     Indication: HIV INFECTION
     Dosage: 1 TAB QD ORAL
     Dates: start: 20130805, end: 20130808
  2. ASPRIN [Concomitant]
  3. PRAVASTATIN [Concomitant]

REACTIONS (2)
  - Small intestinal obstruction [None]
  - Pancreatitis acute [None]
